FAERS Safety Report 16188510 (Version 6)
Quarter: 2019Q3

REPORT INFORMATION
  Report Type: Report from Study
  Country: CA (occurrence: CA)
  Receive Date: 20190412
  Receipt Date: 20190917
  Transmission Date: 20191004
  Serious: Yes (Hospitalization, Other)
  Sender: FDA-Public Use
  Company Number: PHHY2018CA155552

PATIENT
  Age: 60 Year
  Sex: Female

DRUGS (2)
  1. SANDOSTATIN LAR DEPOT [Suspect]
     Active Substance: OCTREOTIDE ACETATE
     Indication: NEUROENDOCRINE TUMOUR
     Dosage: 60 MG, QMO (EVERY 4 WEEKS)
     Route: 030
     Dates: start: 1992
  2. SANDOSTATIN LAR DEPOT [Suspect]
     Active Substance: OCTREOTIDE ACETATE
     Indication: CARCINOID TUMOUR

REACTIONS (8)
  - Haemorrhage [Unknown]
  - Headache [Unknown]
  - Fall [Unknown]
  - Blood pressure systolic increased [Unknown]
  - Heart rate irregular [Unknown]
  - Haemoglobin decreased [Unknown]
  - Blood magnesium decreased [Unknown]
  - Deafness [Unknown]

NARRATIVE: CASE EVENT DATE: 2018
